FAERS Safety Report 5832849-2 (Version None)
Quarter: 2008Q3

REPORT INFORMATION
  Report Type: 
  Country: None (occurrence: None)
  Receive Date: 20080804
  Receipt Date: 20080723
  Transmission Date: 20090109
  Serious: Yes (Death, Other)
  Sender: FDA-Public Use
  Company Number: HU-PFIZER INC-2008062221

PATIENT
  Age: 61 Year
  Sex: Male

DRUGS (8)
  1. CHANTIX [Suspect]
     Indication: SMOKING CESSATION THERAPY
     Route: 048
     Dates: start: 20080222, end: 20080301
  2. IBUPROFEN TABLETS [Concomitant]
     Route: 048
  3. LANSOPRAZOLE [Concomitant]
     Route: 048
     Dates: start: 20080101
  4. PLAVIX [Concomitant]
     Route: 048
  5. NEBILET [Concomitant]
     Route: 048
     Dates: start: 20080101
  6. ACCUZIDE [Concomitant]
     Route: 048
     Dates: start: 20080101
  7. ACCUPRO [Concomitant]
     Route: 048
     Dates: start: 20080101
  8. PENTOXIFYLLINE [Concomitant]
     Route: 048
     Dates: start: 20080101

REACTIONS (7)
  - ABDOMINAL PAIN [None]
  - BRAIN NEOPLASM [None]
  - COMPLETED SUICIDE [None]
  - DEPRESSED MOOD [None]
  - NAUSEA [None]
  - RENAL CYST [None]
  - WEIGHT DECREASED [None]
